FAERS Safety Report 5348961-0 (Version None)
Quarter: 2007Q2

REPORT INFORMATION
  Report Type: 
  Country: None (occurrence: None)
  Receive Date: 20070607
  Receipt Date: 20070601
  Transmission Date: 20071010
  Serious: Yes (Death, Life-Threatening)
  Sender: FDA-Public Use
  Company Number: FR-JNJFOC-20070600490

PATIENT
  Age: 65 Year
  Sex: Female

DRUGS (9)
  1. RISPERDAL [Suspect]
     Route: 048
  2. RISPERDAL [Suspect]
     Route: 048
  3. RISPERDAL [Suspect]
     Route: 048
  4. RISPERDAL [Suspect]
     Indication: PSYCHOTIC DISORDER
     Route: 048
  5. TERCIAN [Suspect]
     Indication: PSYCHOTIC DISORDER
     Route: 048
  6. DUPHALAC [Concomitant]
  7. LANSOYL [Concomitant]
     Indication: CONSTIPATION
  8. PARKINANE LP [Concomitant]
     Indication: PARKINSONISM
  9. RIVOTRIL [Concomitant]
     Indication: ANXIETY

REACTIONS (2)
  - DEATH [None]
  - DYSPHAGIA [None]
